FAERS Safety Report 10536612 (Version 2)
Quarter: 2014Q4

REPORT INFORMATION
  Report Type: Spontaneous
  Country: US (occurrence: US)
  Receive Date: 20141022
  Receipt Date: 20141022
  Transmission Date: 20150529
  Serious: Yes (Hospitalization)
  Sender: FDA-Public Use
  Company Number: US-RECKITT BENCKISER PHARMACEUTICAL, INC-RB-52509-2013

PATIENT

DRUGS (6)
  1. SUBOXONE [Suspect]
     Active Substance: BUPRENORPHINE HYDROCHLORIDE\NALOXONE HYDROCHLORIDE
     Dosage: SUBOXONE FILM; PRESCRIBED 8 MG BUT WAS TAKING LESS, ABOUT 4 MG DAILY
     Route: 060
     Dates: start: 2012, end: 2014
  2. SUBOXONE [Suspect]
     Active Substance: BUPRENORPHINE HYDROCHLORIDE\NALOXONE HYDROCHLORIDE
     Indication: DRUG DEPENDENCE
     Dosage: SUBOXONE FILM
     Route: 060
  3. SUBOXONE [Suspect]
     Active Substance: BUPRENORPHINE HYDROCHLORIDE\NALOXONE HYDROCHLORIDE
     Dosage: SUBOXONE FILM; VARIOUS TAPERED DOSES
     Route: 060
     Dates: start: 2013, end: 20130421
  4. XANAX [Concomitant]
     Active Substance: ALPRAZOLAM
     Indication: ANXIETY
     Dosage: TAKING EVERY 4-6 HOURS
     Route: 048
  5. SUBOXONE [Suspect]
     Active Substance: BUPRENORPHINE HYDROCHLORIDE\NALOXONE HYDROCHLORIDE
     Dosage: SUBOXONE FILM; DOSING DETAILS UNKNOWN; THE PATIENT WAS TAKING ABOUT 1 OR 2 FILMS A WEEK
     Route: 060
     Dates: start: 2013, end: 201305
  6. LIBRAX [Concomitant]
     Active Substance: CHLORDIAZEPOXIDE HYDROCHLORIDE\CLIDINIUM BROMIDE
     Indication: GASTROINTESTINAL DISORDER
     Dosage: DOSING DETAILS UNKNOWN
     Route: 048

REACTIONS (16)
  - Intentional underdose [Recovered/Resolved]
  - Substance abuse [Recovered/Resolved]
  - Therapeutic response unexpected [Recovered/Resolved]
  - Unevaluable event [Recovered/Resolved]
  - Tremor [Recovered/Resolved]
  - Somnolence [Recovered/Resolved]
  - Feeling abnormal [Recovered/Resolved]
  - Nephrolithiasis [Unknown]
  - Fluid intake reduced [Recovered/Resolved]
  - Wrong technique in drug usage process [Recovered/Resolved]
  - Insomnia [Recovering/Resolving]
  - Asthenia [Recovering/Resolving]
  - Decreased appetite [Recovered/Resolved]
  - Pain [Recovered/Resolved]
  - Urinary tract infection [Not Recovered/Not Resolved]
  - Drug withdrawal syndrome [Recovered/Resolved]

NARRATIVE: CASE EVENT DATE: 2012
